FAERS Safety Report 16743550 (Version 2)
Quarter: 2020Q3

REPORT INFORMATION
  Report Type: Spontaneous
  Country: NL (occurrence: NL)
  Receive Date: 20190827
  Receipt Date: 20200928
  Transmission Date: 20201102
  Serious: Yes (Disabling)
  Sender: FDA-Public Use
  Company Number: NL-AXELLIA-002660

PATIENT
  Age: 57 Year
  Sex: Male
  Weight: 65 kg

DRUGS (23)
  1. DOXAZOSIN [Concomitant]
     Active Substance: DOXAZOSIN MESYLATE
     Dosage: 1DD1 PER PROBE, STRENGTH:8 MG
  2. OXYCODONE [Concomitant]
     Active Substance: OXYCODONE
     Dosage: ZO NODIG VOOR WONDZORG OF TRANSFERS,STRENGTH?5 MG TABLET
  3. NATRIUMCHLORIDE [Concomitant]
     Active Substance: SODIUM CHLORIDE
     Dosage: 4DD RECOMMENDED,SODIUM CHLORIDE RINSE  30MG/ML (3%)
  4. SPIRONOLACTONE. [Concomitant]
     Active Substance: SPIRONOLACTONE
     Dosage: 1DD1 PER PROBE,STRENGTH?50 MG TABLET
  5. SEVELAMER/SEVELAMER HYDROCHLORIDE [Concomitant]
     Active Substance: SEVELAMER
     Dosage: 3DD1 PER SONDE,SEVELAMEER CAPSULE 100MG (CARBONAAT)
  6. LINEZOLID. [Concomitant]
     Active Substance: LINEZOLID
     Dosage: 2DD IV,STRENGTH?600MG TABLET
  7. PARACETAMOL [Concomitant]
     Active Substance: ACETAMINOPHEN
     Dosage: 4DD PER PROBE,STRENGTH?1000 MG TABLET
  8. METOPROLOL. [Concomitant]
     Active Substance: METOPROLOL
     Dosage: 3DD1 PER PROBE,STRENGTH?100 MG TABLET
  9. THIAMINE. [Concomitant]
     Active Substance: THIAMINE
     Dosage: 1DD1 IV,STRENGTH?100 MG TABLET
  10. AMLODIPINE [Concomitant]
     Active Substance: AMLODIPINE BESYLATE
     Dosage: AMLODIPINE TABLET STRENGTH:10MG,1DD1 PER PROBE
  11. CLOPIDOGREL [Concomitant]
     Active Substance: CLOPIDOGREL BISULFATE
     Dosage: 1DD1 PER SONDE,STRENGTH?75 MG TABLET
  12. PERINDOPRIL/PERINDOPRIL ERBUMINE [Concomitant]
     Active Substance: PERINDOPRIL ERBUMINE
     Dosage: 1DD PER SONDE,STREGTH?4 MG TABLET
  13. ASCORBIC ACID/ERGOCALCIFEROL/FOLIC ACID/NICOTINAMIDE/PANTHENOL/RETINOL/RIBOFLAVIN/THIAMINE HYDROCHLO [Concomitant]
     Active Substance: ASCORBIC ACID\ERGOCALCIFEROL\FOLIC ACID\NIACIN\PANTHENOL\RETINOL\RIBOFLAVIN\THIAMINE HYDROCHLORIDE
  14. VANCOMYCIN [Suspect]
     Active Substance: VANCOMYCIN
     Indication: ARTERITIS
     Dosage: INITIALLY 1000 MG / 24 HOURS, THEN ON MIRROR GUIDANCE,STRENGTH?20.833 MG / ML
     Dates: start: 20190625, end: 20190715
  15. FUROSEMIDE. [Concomitant]
     Active Substance: FUROSEMIDE
     Dosage: FROM PERFUSOR 120 MG / DAY TO BOLUSES 40 MG ONCE DAILY, DURING INTAKE
  16. PHENPROCOUMON [Concomitant]
     Active Substance: PHENPROCOUMON
     Dosage: 1DD1 PER SONDE,STRENGTH?3 MG TABLET
  17. BUMETANIDE. [Concomitant]
     Active Substance: BUMETANIDE
     Dosage: 2DD1 PER SONDE,STRENGTH?5MG TABLET
  18. HALOPERIDOL/HALOPERIDOL DECANOATE/HALOPERIDOL LACTATE [Concomitant]
     Active Substance: HALOPERIDOL
     Dosage: 3DD 0.5?0.5?2 MG IV
  19. NORTRIPTYLINE/NORTRIPTYLINE HYDROCHLORIDE [Concomitant]
     Active Substance: NORTRIPTYLINE
     Dosage: 1DD1 PER SONDE,STRENGTH?25 MG TABLET
  20. IPRAMOL [Concomitant]
     Active Substance: ALBUTEROL SULFATE\IPRATROPIUM BROMIDE
     Dosage: 6DD NEBULIZE
  21. MOVICOLON [Concomitant]
     Active Substance: POLYETHYLENE GLYCOL 3350\POTASSIUM CHLORIDE\SODIUM BICARBONATE\SODIUM CHLORIDE
     Dosage: 2DD PER PROBE,STRENGTH?27.6 GRAM
  22. ERYTHROMYCIN. [Concomitant]
     Active Substance: ERYTHROMYCIN
  23. SEVELAMER [Concomitant]
     Active Substance: SEVELAMER
     Dosage: STRENGTH: 100 MG,(CARBONATE),3DD1 PER PROBE

REACTIONS (1)
  - Deafness neurosensory [Not Recovered/Not Resolved]

NARRATIVE: CASE EVENT DATE: 20190715
